FAERS Safety Report 5094719-X (Version None)
Quarter: 2006Q3

REPORT INFORMATION
  Report Type: 
  Country: None (occurrence: None)
  Receive Date: 20060731
  Receipt Date: 20060411
  Transmission Date: 20061208
  Serious: No
  Sender: FDA-Public Use
  Company Number: 2006PV011949

PATIENT
  Age: 70 Year
  Sex: Male

DRUGS (1)
  1. BYETTA [Suspect]
     Dosage: SC
     Route: 058
     Dates: start: 20060102

REACTIONS (1)
  - WEIGHT DECREASED [None]
